FAERS Safety Report 21730080 (Version 1)
Quarter: 2022Q4

REPORT INFORMATION
  Report Type: Spontaneous
  Country: US (occurrence: US)
  Receive Date: 20221214
  Receipt Date: 20221214
  Transmission Date: 20230113
  Serious: Yes (Hospitalization)
  Sender: FDA-Public Use
  Company Number: US-BRISTOL-MYERS SQUIBB COMPANY-2022-151327

PATIENT
  Age: 72 Year
  Sex: Male
  Weight: 89.811 kg

DRUGS (1)
  1. POMALYST [Suspect]
     Active Substance: POMALIDOMIDE
     Indication: Plasma cell myeloma
     Dosage: 3W (WEEK), 1W (WEEK) OFF
     Route: 048

REACTIONS (2)
  - Fall [Unknown]
  - Confusional state [Unknown]
